FAERS Safety Report 11613363 (Version 1)
Quarter: 2015Q4

REPORT INFORMATION
  Report Type: Spontaneous
  Country: US (occurrence: None)
  Receive Date: 20151008
  Receipt Date: 20151008
  Transmission Date: 20160304
  Serious: Yes (Other)
  Sender: FDA-Public Use
  Company Number: ADR-2015-01461

PATIENT
  Age: 51 Year
  Sex: Male

DRUGS (2)
  1. COMPOUNDED BACLOFEN INTRATHECAL - 200 MCG/ML [Suspect]
     Active Substance: BACLOFEN
     Indication: PAIN
     Dosage: 80 MCG/DAY; SEE B5
  2. FENTANYL INTRATHECAL - 5,000 MCG/ML [Suspect]
     Active Substance: FENTANYL
     Indication: PAIN
     Dosage: 2,000 MCG/DAY; SEE B5

REACTIONS (2)
  - Somnolence [None]
  - Malaise [None]
